FAERS Safety Report 15182756 (Version 2)
Quarter: 2018Q3

REPORT INFORMATION
  Report Type: Spontaneous
  Country: US (occurrence: US)
  Receive Date: 20180723
  Receipt Date: 20180816
  Transmission Date: 20181010
  Serious: Yes (Other)
  Sender: FDA-Public Use
  Company Number: US-PERRIGO-18US007188

PATIENT
  Age: 51 Year
  Sex: Male
  Weight: 99.77 kg

DRUGS (4)
  1. LICE SHAMPOO [Suspect]
     Active Substance: PIPERONYL BUTOXIDE\PYRETHRUM EXTRACT
     Dosage: 2/3 OF BOTTLE, SINGLE
     Route: 061
     Dates: start: 201807, end: 201807
  2. LICE SHAMPOO [Suspect]
     Active Substance: PIPERONYL BUTOXIDE\PYRETHRUM EXTRACT
     Indication: ACCIDENTAL EXPOSURE TO PRODUCT
     Dosage: LITTLE BIT, SINGLE
     Route: 047
     Dates: start: 20180709, end: 20180709
  3. LICE SHAMPOO [Suspect]
     Active Substance: PIPERONYL BUTOXIDE\PYRETHRUM EXTRACT
     Indication: LICE INFESTATION
     Dosage: 1/3 OF BOTTLE, SINGLE
     Route: 061
     Dates: start: 20180709, end: 20180709
  4. SEROQUEL [Concomitant]
     Active Substance: QUETIAPINE FUMARATE
     Indication: DEPRESSION

REACTIONS (3)
  - Vision blurred [Recovered/Resolved]
  - Accidental exposure to product [Recovered/Resolved]
  - Chemical burn [Recovered/Resolved]

NARRATIVE: CASE EVENT DATE: 20180709
